FAERS Safety Report 5646830-X (Version None)
Quarter: 2008Q1

REPORT INFORMATION
  Report Type: 
  Country: None (occurrence: None)
  Receive Date: 20080228
  Receipt Date: 20080220
  Transmission Date: 20080703
  Serious: Yes (Life-Threatening)
  Sender: FDA-Public Use
  Company Number: GXKR2008DE01843

PATIENT
  Age: 75 Year
  Sex: Female

DRUGS (24)
  1. FUROSEMIDE [Suspect]
     Indication: PLEURAL EFFUSION
     Dosage: 40 MG, QD, INTRAVENOUS
     Route: 042
     Dates: start: 20040906, end: 20040911
  2. METOHEXAL (NGX) (METOPROLOL) TABLET, 25MG [Suspect]
     Indication: HYPERTENSION
     Dosage: 25 MG, TID, ORAL
     Route: 048
     Dates: start: 20040912
  3. DIAZEPAM [Suspect]
     Indication: SLEEP DISORDER
     Dosage: 5 MG, ORAL; 10 MG, QD
     Route: 048
     Dates: start: 20040817, end: 20040817
  4. DIAZEPAM [Suspect]
     Indication: SLEEP DISORDER
     Dosage: 5 MG, ORAL; 10 MG, QD
     Route: 048
     Dates: start: 20040912, end: 20070912
  5. OXAZEPAM [Suspect]
     Indication: SEDATION
     Dosage: 10 MG, ORAL; 10 MG, QD, ORAL; 10 MG,QD, ORAL
     Route: 048
     Dates: start: 20040819, end: 20040819
  6. OXAZEPAM [Suspect]
     Indication: SEDATION
     Dosage: 10 MG, ORAL; 10 MG, QD, ORAL; 10 MG,QD, ORAL
     Route: 048
     Dates: start: 20040824, end: 20040824
  7. OXAZEPAM [Suspect]
     Indication: SEDATION
     Dosage: 10 MG, ORAL; 10 MG, QD, ORAL; 10 MG,QD, ORAL
     Route: 048
     Dates: start: 20040830, end: 20040912
  8. CAPTOPRIL [Suspect]
     Indication: HYPERTENSION
     Dosage: 1 TABLET, QD, ORAL
     Route: 048
     Dates: start: 20040819, end: 20040911
  9. CAPTOPRIL [Suspect]
     Indication: HYPERTENSION
     Dosage: 1 TABLET, QD, ORAL
     Route: 048
     Dates: start: 20040819
  10. DELIX PLUS (HYDROCHLOROTHIAZIDE, RAMIPRIL) 2.5MG [Suspect]
     Indication: HYPERTENSION
     Dosage: 2.5 MG, QD, ORAL
     Route: 048
     Dates: start: 20040823
  11. OMEPRAZOLE [Suspect]
     Indication: PROPHYLAXIS AGAINST GASTROINTESTINAL ULCER
     Dosage: QD, ORAL
     Route: 048
     Dates: start: 20040825
  12. VANCOMYCIN [Suspect]
     Indication: ENDOCARDITIS
     Dosage: INTRAVENOUS
     Dates: start: 20040830, end: 20040905
  13. VANCOMYCIN [Suspect]
     Indication: ENDOCARDITIS
     Dosage: INTRAVENOUS
     Dates: start: 20040907, end: 20040907
  14. NITROGLYCERIN [Suspect]
     Dosage: 50 MG, INTRAVENOUS
     Route: 042
     Dates: start: 20040907, end: 20040911
  15. ROCEPHIN [Suspect]
     Indication: INFECTION
     Dosage: 2 G, QD, INTRAVENOUS
     Route: 042
     Dates: start: 20040910, end: 20040910
  16. CEFTRIAXONE [Suspect]
     Indication: INFECTION
     Dosage: 2 G, QD, INTRAVENOUS
     Route: 042
     Dates: start: 20040910, end: 20040910
  17. MIDAZOLAM HYDROCHLORIDE [Suspect]
     Indication: PREMEDICATION
     Dosage: 5 MG, QD, INTRAVENOUS
     Route: 042
     Dates: start: 20040830, end: 20040830
  18. MIDAZOLAM HYDROCHLORIDE [Suspect]
     Indication: PREMEDICATION
     Dosage: 5 MG, QD, INTRAVENOUS
     Route: 042
     Dates: start: 20040910, end: 20040910
  19. NOVALGIN/SCH/(METAMIZOLE SODIUM MONOHYDRATE) DROPS [Suspect]
     Indication: PAIN
     Dosage: ORAL
     Route: 048
     Dates: start: 20040830, end: 20040902
  20. GENTAMICIN SULFATE [Suspect]
     Indication: ENDOCARDITIS
     Dosage: 80 MG, TID, INTRAVENOUS
     Route: 042
     Dates: start: 20040830, end: 20040902
  21. MIDAZOLAM HCL [Suspect]
     Indication: PREMEDICATION
     Dosage: 5 MG, INTRAVENOUS
     Route: 042
     Dates: start: 20040902, end: 20040902
  22. PROPOFOL [Suspect]
     Indication: ARRHYTHMIA
     Dosage: 30 MG, QD, INTRAVENOUS
     Route: 042
     Dates: start: 20040902, end: 20040902
  23. ATROPINE SULFATE [Suspect]
     Indication: ARRHYTHMIA
     Dosage: INTRAVENOUS
     Route: 042
     Dates: start: 20040902, end: 20040902
  24. INSULIN [Suspect]
     Indication: HYPERGLYCAEMIA
     Dates: start: 20040904, end: 20040906

REACTIONS (3)
  - GASTROENTERITIS [None]
  - STEVENS-JOHNSON SYNDROME [None]
  - TOXIC EPIDERMAL NECROLYSIS [None]
